FAERS Safety Report 5166249-8 (Version None)
Quarter: 2006Q4

REPORT INFORMATION
  Report Type: 
  Country: None (occurrence: None)
  Receive Date: 20060830
  Receipt Date: 20060612
  Transmission Date: 20070319
  Serious: No
  Sender: FDA-Public Use
  Company Number: 226206

PATIENT
  Sex: Female

DRUGS (4)
  1. XOLAIR [Suspect]
     Indication: ASTHMA
     Dates: start: 20060301
  2. INHALER NOS (GENERIC COMPONENT(S) NOT KNOWN) [Concomitant]
  3. BLOOD PRESSUE MEDICATION NOS(ANTIHYPERTENSIVE NOS) [Concomitant]
  4. VITAMINS (VITAMNIS NOS) [Concomitant]

REACTIONS (2)
  - ABDOMINAL DISTENSION [None]
  - SWELLING FACE [None]
